FAERS Safety Report 21858385 (Version 1)
Quarter: 2023Q1

REPORT INFORMATION
  Report Type: Spontaneous
  Country: US (occurrence: US)
  Receive Date: 20230113
  Receipt Date: 20230113
  Transmission Date: 20230417
  Serious: No
  Sender: FDA-Public Use
  Company Number: US-PADAGIS-2022PAD01241

PATIENT

DRUGS (1)
  1. TESTOSTERONE CYPIONATE [Suspect]
     Active Substance: TESTOSTERONE CYPIONATE
     Indication: Blood testosterone decreased
     Dosage: UNK
     Route: 030
     Dates: start: 202209

REACTIONS (4)
  - Injection site swelling [None]
  - Injection site pain [None]
  - Injection site erythema [None]
  - Multiple use of single-use product [Unknown]

NARRATIVE: CASE EVENT DATE: 20220901
